FAERS Safety Report 4828042-2 (Version None)
Quarter: 2005Q4

REPORT INFORMATION
  Report Type: 
  Country: None (occurrence: None)
  Receive Date: 20051110
  Receipt Date: 20051028
  Transmission Date: 20060501
  Serious: Yes (Other)
  Sender: FDA-Public Use
  Company Number: 2005148545

PATIENT
  Weight: 91.6266 kg

DRUGS (7)
  1. DETROL LA [Suspect]
     Indication: BLADDER DISORDER
     Dosage: 4 MG (4 MG, 1 IN 1 D), ORAL
     Route: 048
     Dates: start: 20030101
  2. ALL OTHER THERAPEUTIC PRODUCTS (ALL OTHER THERAPEUTIC PRODUCTS) [Suspect]
     Indication: NEOPLASM MALIGNANT
  3. ANTINEOPLASTIC AGENTS (ANTINEOPLASTIC AGENTS) [Suspect]
     Indication: NEOPLASM MALIGNANT
  4. NEURONTIN [Concomitant]
  5. NEXIUM [Concomitant]
  6. CELEBREX [Concomitant]
  7. CYCLOBENZAPRINE HCL [Concomitant]

REACTIONS (16)
  - ANOREXIA [None]
  - ANXIETY [None]
  - ARTHRITIS [None]
  - BONE NEOPLASM MALIGNANT [None]
  - DEPRESSION [None]
  - DRUG INEFFECTIVE [None]
  - HEPATIC NEOPLASM MALIGNANT [None]
  - MUSCULOSKELETAL STIFFNESS [None]
  - NAUSEA [None]
  - OEDEMA PERIPHERAL [None]
  - PAIN [None]
  - POST PROCEDURAL NAUSEA [None]
  - RADIATION INJURY [None]
  - SPEECH DISORDER [None]
  - WEIGHT DECREASED [None]
  - WEIGHT INCREASED [None]
